FAERS Safety Report 21542212 (Version 4)
Quarter: 2023Q2

REPORT INFORMATION
  Report Type: Spontaneous
  Country: US (occurrence: US)
  Receive Date: 20221102
  Receipt Date: 20230525
  Transmission Date: 20230721
  Serious: No
  Sender: FDA-Public Use
  Company Number: US-PFIZER INC-202201269724

PATIENT
  Age: 65 Year
  Sex: Female

DRUGS (2)
  1. IBRANCE [Suspect]
     Active Substance: PALBOCICLIB
     Indication: Neoplasm malignant
     Dosage: 21 DAYS AND THEN 7 DAYS OFF
     Dates: start: 2018
  2. FASLODEX [Suspect]
     Active Substance: FULVESTRANT
     Indication: Neoplasm malignant
     Dosage: UNK
     Dates: start: 2018

REACTIONS (5)
  - Illness [Unknown]
  - Alopecia [Not Recovered/Not Resolved]
  - Full blood count abnormal [Unknown]
  - Neoplasm progression [Unknown]
  - Laboratory test abnormal [Unknown]
